FAERS Safety Report 4367715-5 (Version None)
Quarter: 2004Q2

REPORT INFORMATION
  Report Type: 
  Country: None (occurrence: None)
  Receive Date: 20040526
  Receipt Date: 20040109
  Transmission Date: 20050107
  Serious: Yes (Hospitalization)
  Sender: FDA-Public Use
  Company Number: USA031050462

PATIENT
  Age: 39 Year
  Sex: Male

DRUGS (9)
  1. ZYPREXA [Suspect]
     Indication: THINKING ABNORMAL
     Dosage: 10 MG/AT BEDTIME
  2. BENADRYL [Concomitant]
  3. VICODIN [Concomitant]
  4. AMBIEN [Concomitant]
  5. DEPAKOTE [Concomitant]
  6. MULTIVITAMINS NOS (MULTIVITAMINS NOS) [Concomitant]
  7. CLONAZEPAM [Concomitant]
  8. ATENOLOL [Concomitant]
  9. DILANTIN [Concomitant]

REACTIONS (9)
  - CONSTIPATION [None]
  - DRUG HYPERSENSITIVITY [None]
  - DYSPNOEA [None]
  - DYSTONIA [None]
  - HALLUCINATION, AUDITORY [None]
  - HEADACHE [None]
  - LETHARGY [None]
  - MOOD SWINGS [None]
  - SOMNOLENCE [None]
